FAERS Safety Report 5229687-0 (Version None)
Quarter: 2007Q1

REPORT INFORMATION
  Report Type: 
  Country: None (occurrence: None)
  Receive Date: 20070206
  Receipt Date: 20070124
  Transmission Date: 20070707
  Serious: Yes (Hospitalization)
  Sender: FDA-Public Use
  Company Number: GB-PURDUE-DEU_2006_0002229

PATIENT
  Age: 25 Year
  Sex: Female
  Weight: 91 kg

DRUGS (2)
  1. OXY CR TAB 10 MG [Suspect]
     Indication: PAIN
     Dosage: 50 MG, DAILY
     Route: 048
     Dates: start: 20060517, end: 20060518
  2. OXYCODON KAPSELN 5MG [Suspect]
     Indication: PAIN
     Dosage: 5 MG, PRN
     Route: 048
     Dates: start: 20060509, end: 20060518

REACTIONS (1)
  - HEADACHE [None]
